FAERS Safety Report 13058335 (Version 7)
Quarter: 2020Q3

REPORT INFORMATION
  Report Type: Report from Study
  Country: CA (occurrence: CA)
  Receive Date: 20161223
  Receipt Date: 20191203
  Transmission Date: 20201104
  Serious: Yes (Hospitalization, Other)
  Sender: FDA-Public Use
  Company Number: PHHY2012CA082420

PATIENT
  Age: 25 Year
  Sex: Male

DRUGS (4)
  1. XOLAIR [Suspect]
     Active Substance: OMALIZUMAB
     Indication: ASTHMA
     Dosage: 150 MG, EVERY 4 WEEKS
     Route: 058
     Dates: start: 20101110
  2. XOLAIR [Suspect]
     Active Substance: OMALIZUMAB
     Dosage: 150 MG, EVERY 4 WEEKS
     Route: 058
     Dates: start: 2018
  3. XOLAIR [Suspect]
     Active Substance: OMALIZUMAB
     Dosage: UNK
     Route: 058
     Dates: start: 20161209
  4. TOBI PODHALER [Suspect]
     Active Substance: TOBRAMYCIN
     Indication: CYSTIC FIBROSIS
     Dosage: BID
     Route: 065

REACTIONS (16)
  - Asthma [Unknown]
  - Sputum discoloured [Unknown]
  - Asthma [Recovered/Resolved]
  - Pneumonia [Unknown]
  - Heart rate increased [Unknown]
  - Malaise [Unknown]
  - Increased viscosity of bronchial secretion [Unknown]
  - Weight increased [Unknown]
  - Nasopharyngitis [Unknown]
  - Bronchospasm [Unknown]
  - Dyspnoea [Unknown]
  - Influenza [Unknown]
  - Increased bronchial secretion [Unknown]
  - Fibrosis [Unknown]
  - Moaning [Unknown]
  - Forced expiratory volume decreased [Not Recovered/Not Resolved]

NARRATIVE: CASE EVENT DATE: 2012
